FAERS Safety Report 9414765 (Version 1)
Quarter: 2013Q3

REPORT INFORMATION
  Report Type: Spontaneous
  Country: US (occurrence: US)
  Receive Date: 20130723
  Receipt Date: 20130723
  Transmission Date: 20140515
  Serious: Yes (Other)
  Sender: FDA-Public Use
  Company Number: US-PFIZER INC-2013210385

PATIENT
  Age: 60 Year
  Sex: Female

DRUGS (5)
  1. PACLITAXEL [Suspect]
     Indication: OVARIAN CANCER
     Dosage: 175 MG/M2, CYCLIC (FOR 3 HOURS)
     Dates: start: 201209
  2. CARBOPLATIN [Concomitant]
     Indication: OVARIAN CANCER
     Dosage: UNK
     Dates: start: 201209
  3. DIPHENHYDRAMINE [Concomitant]
     Indication: PREMEDICATION
     Dosage: 50 MG, UNK
     Route: 042
  4. DECADRON [Concomitant]
     Indication: PREMEDICATION
     Dosage: 20 MG, UNK
     Route: 042
  5. FAMOTIDINE [Concomitant]
     Indication: PREMEDICATION
     Dosage: 20 MG, UNK
     Route: 042

REACTIONS (3)
  - Respiratory distress [Recovered/Resolved]
  - Urticaria [Recovered/Resolved]
  - Hypersensitivity [Recovered/Resolved]
